FAERS Safety Report 7529949-8 (Version None)
Quarter: 2011Q2

REPORT INFORMATION
  Report Type: 
  Country: None (occurrence: None)
  Receive Date: 20110607
  Receipt Date: 20110531
  Transmission Date: 20111010
  Serious: Yes (Hospitalization)
  Sender: FDA-Public Use
  Company Number: US-GILEAD-2011-0040010

PATIENT
  Age: 74 Year
  Sex: Female

DRUGS (13)
  1. PAROXETINE [Concomitant]
  2. LETAIRIS [Suspect]
     Indication: PULMONARY ARTERIAL HYPERTENSION
     Dates: start: 20100910, end: 20110509
  3. METOPROLOL SUCCINATE [Concomitant]
  4. LEVEMIR [Concomitant]
  5. LEVOTHYROXINE SODIUM [Concomitant]
  6. FLUTICASONE PROPIONATE [Concomitant]
  7. SIMVASTATIN [Concomitant]
  8. LOSARTAN POTASSIUM [Concomitant]
  9. PROAIR HFA [Concomitant]
  10. EPOGEN [Concomitant]
  11. ISOSORBIDE [Concomitant]
  12. ZEMPLAR [Concomitant]
  13. SPIRIVA [Concomitant]

REACTIONS (4)
  - ACUTE MYOCARDIAL INFARCTION [None]
  - VASCULAR GRAFT OCCLUSION [None]
  - SEPTIC SHOCK [None]
  - PERIPHERAL ISCHAEMIA [None]
